FAERS Safety Report 4558710-1 (Version None)
Quarter: 2005Q1

REPORT INFORMATION
  Report Type: 
  Country: None (occurrence: None)
  Receive Date: 20050121
  Receipt Date: 20050121
  Transmission Date: 20050727
  Serious: No
  Sender: FDA-Public Use
  Company Number: None

PATIENT
  Sex: Male

DRUGS (1)
  1. TRICOR [Suspect]
     Dosage: ONE PO Q DAY
     Route: 048

REACTIONS (1)
  - DRUG INTOLERANCE [None]
